FAERS Safety Report 10153980 (Version 1)
Quarter: 2014Q2

REPORT INFORMATION
  Report Type: Spontaneous
  Country: US (occurrence: US)
  Receive Date: 20140506
  Receipt Date: 20140506
  Transmission Date: 20141212
  Serious: No
  Sender: FDA-Public Use
  Company Number: US-SHIRE-US201401750

PATIENT
  Age: 14 Year
  Sex: Male
  Weight: 68.27 kg

DRUGS (2)
  1. VYVANSE [Suspect]
     Indication: ATTENTION DEFICIT/HYPERACTIVITY DISORDER
     Dosage: 80 MG, 1X/DAY:QD (TWO 40 MG AT QAM)
     Route: 048
  2. VYVANSE [Suspect]
     Dosage: UNK, ONE DOSE (TOOK TWO MORE 40 MG VYVANSE AT 3:30)
     Route: 048
     Dates: start: 201404, end: 201404

REACTIONS (2)
  - Overdose [Not Recovered/Not Resolved]
  - No adverse event [Not Recovered/Not Resolved]
